FAERS Safety Report 12154718 (Version 1)
Quarter: 2016Q1

REPORT INFORMATION
  Report Type: Spontaneous
  Country: US (occurrence: None)
  Receive Date: 20160304
  Receipt Date: 20160304
  Transmission Date: 20160526
  Serious: Yes (Other)
  Sender: FDA-Public Use
  Company Number: None

PATIENT
  Age: 48 Year
  Sex: Male
  Weight: 132.9 kg

DRUGS (5)
  1. ASA [Concomitant]
     Active Substance: ASPIRIN
  2. BRILINTA [Suspect]
     Active Substance: TICAGRELOR
     Indication: CORONARY ANGIOPLASTY
     Route: 048
     Dates: start: 20160202
  3. METOPROLOL TARTRATE. [Concomitant]
     Active Substance: METOPROLOL TARTRATE
  4. CRESTOR [Concomitant]
     Active Substance: ROSUVASTATIN CALCIUM
  5. ALPRAZALAM [Concomitant]

REACTIONS (2)
  - Dizziness [None]
  - Dyspnoea [None]

NARRATIVE: CASE EVENT DATE: 20160202
